FAERS Safety Report 16012736 (Version 1)
Quarter: 2019Q1

REPORT INFORMATION
  Report Type: Spontaneous
  Country: GB (occurrence: GB)
  Receive Date: 20190227
  Receipt Date: 20190227
  Transmission Date: 20190418
  Serious: Yes (Disabling)
  Sender: FDA-Public Use
  Company Number: GB-PERRIGO-19GB002536

PATIENT
  Age: 67 Year
  Sex: Male
  Weight: 107 kg

DRUGS (8)
  1. SUMATRIPTAN. [Concomitant]
     Active Substance: SUMATRIPTAN
     Indication: PRODUCT USED FOR UNKNOWN INDICATION
     Dosage: AS DIRECTED
     Dates: start: 20170622
  2. ISPAGHULA EXTRACT\PSYLLIUM [Concomitant]
     Active Substance: HERBALS\PLANTAGO OVATA SEED\PLANTAGO SEED
     Indication: PRODUCT USED FOR UNKNOWN INDICATION
     Dosage: 1 DF, QD
     Dates: start: 20170622
  3. PARACETAMOL [Concomitant]
     Active Substance: ACETAMINOPHEN
     Indication: PRODUCT USED FOR UNKNOWN INDICATION
     Dosage: 8 DF, QD
     Dates: start: 20170622
  4. LAXIDO [Concomitant]
     Active Substance: POLYETHYLENE GLYCOL 3350\POTASSIUM CHLORIDE\SODIUM BICARBONATE\SODIUM CHLORIDE
     Indication: CONSTIPATION
     Dosage: ONE TO TWO SACHETS DAILY.
     Dates: start: 20170622
  5. DERMOL                             /00337102/ [Concomitant]
     Active Substance: CLOBETASOL PROPIONATE
     Indication: PRODUCT USED FOR UNKNOWN INDICATION
     Dosage: USE TO WASH
     Dates: start: 20180605
  6. CETIRIZINE HYDROCHLORIDE. [Suspect]
     Active Substance: CETIRIZINE HYDROCHLORIDE
     Indication: PRODUCT USED FOR UNKNOWN INDICATION
     Dosage: 10 MG, QD
     Route: 048
     Dates: start: 20181204
  7. CAPASAL [Concomitant]
     Indication: PRODUCT USED FOR UNKNOWN INDICATION
     Dosage: USE
     Dates: start: 20181204
  8. PANTOPRAZOLE [Concomitant]
     Active Substance: PANTOPRAZOLE
     Indication: PRODUCT USED FOR UNKNOWN INDICATION
     Dosage: 1 DF, QD
     Dates: start: 20180605

REACTIONS (2)
  - Dizziness [Unknown]
  - Malaise [Recovered/Resolved]

NARRATIVE: CASE EVENT DATE: 20190213
